FAERS Safety Report 18453272 (Version 3)
Quarter: 2020Q4

REPORT INFORMATION
  Report Type: Report from Study
  Country: FR (occurrence: FR)
  Receive Date: 20201102
  Receipt Date: 20201223
  Transmission Date: 20210114
  Serious: Yes (Life-Threatening)
  Sender: FDA-Public Use
  Company Number: FR-PFIZER INC-2020415779

PATIENT
  Weight: 51 kg

DRUGS (6)
  1. ONDANSETRON [Concomitant]
     Active Substance: ONDANSETRON
     Indication: NAUSEA
     Dosage: 8 MG, 2X/DAY
     Dates: start: 20200512
  2. MITOXANTRONE [Suspect]
     Active Substance: MITOXANTRONE HYDROCHLORIDE
     Indication: ACUTE MYELOID LEUKAEMIA
     Dosage: 11 MG/M2, 1X/DAY
     Route: 042
     Dates: start: 20200515, end: 20200518
  3. PARACETAMOL [Concomitant]
     Active Substance: ACETAMINOPHEN
     Indication: PYREXIA
     Dosage: 800 MG, 2X/DAY
     Dates: start: 20200512
  4. GEMTUZUMAB OZOGAMICIN [Suspect]
     Active Substance: GEMTUZUMAB OZOGAMICIN
     Indication: ACUTE MYELOID LEUKAEMIA
     Dosage: 4.4 MG (OTHER)
     Route: 042
     Dates: start: 20200518, end: 20200518
  5. ALIZAPRIDE [Concomitant]
     Active Substance: ALIZAPRIDE
     Indication: NAUSEA
     Dosage: 50 MG, 4X/DAY
     Dates: start: 20200515
  6. FORTUM [Concomitant]
     Active Substance: CEFTAZIDIME
     Indication: INFECTION
     Dosage: 2 OTHER, 2X/DAY
     Dates: start: 20200512, end: 20200513

REACTIONS (1)
  - Sepsis [Recovered/Resolved]

NARRATIVE: CASE EVENT DATE: 20200526
